FAERS Safety Report 4519421-1 (Version None)
Quarter: 2004Q4

REPORT INFORMATION
  Report Type: 
  Country: None (occurrence: None)
  Receive Date: 20041202
  Receipt Date: 20041125
  Transmission Date: 20050328
  Serious: Yes (Death, Other)
  Sender: FDA-Public Use
  Company Number: 200413268GDS

PATIENT
  Age: 55 Year
  Sex: Male

DRUGS (3)
  1. AVELOX [Suspect]
  2. VOLTAREN [Concomitant]
  3. LINCOCIN [Concomitant]

REACTIONS (1)
  - ANAPHYLACTIC SHOCK [None]
